FAERS Safety Report 21610285 (Version 2)
Quarter: 2022Q4

REPORT INFORMATION
  Report Type: Report from Study
  Country: US (occurrence: US)
  Receive Date: 20221117
  Receipt Date: 20221123
  Transmission Date: 20230112
  Serious: No
  Sender: FDA-Public Use
  Company Number: US-ABBVIE-4167775

PATIENT
  Sex: Female

DRUGS (1)
  1. HUMIRA [Suspect]
     Active Substance: ADALIMUMAB
     Indication: Rheumatoid arthritis
     Dosage: STRENGTH 40MG
     Route: 058

REACTIONS (5)
  - Sjogren^s syndrome [Not Recovered/Not Resolved]
  - Drug ineffective [Unknown]
  - Arthritis [Unknown]
  - Oral mucosal blistering [Unknown]
  - Weight decreased [Unknown]
